FAERS Safety Report 4686374-5 (Version None)
Quarter: 2005Q2

REPORT INFORMATION
  Report Type: 
  Country: None (occurrence: None)
  Receive Date: 20050606
  Receipt Date: 20050525
  Transmission Date: 20051028
  Serious: Yes (Hospitalization)
  Sender: FDA-Public Use
  Company Number: 2005079862

PATIENT
  Age: 73 Year
  Sex: Female
  Weight: 80 kg

DRUGS (5)
  1. FRAGMIN [Suspect]
     Indication: THROMBOSIS PROPHYLAXIS
     Dosage: 5000IE (1 IN 1 D), SUBCUTANEOUS
     Route: 058
     Dates: start: 20050517
  2. ENALAPRIL MALEATE [Concomitant]
  3. DICLOMELAN (DICLOFENAC SODIUM) [Concomitant]
  4. PANTOPRAZOLE [Concomitant]
  5. LORAZEPAM [Concomitant]

REACTIONS (1)
  - DEEP VEIN THROMBOSIS [None]
